FAERS Safety Report 9491621 (Version 2)
Quarter: 2013Q3

REPORT INFORMATION
  Report Type: Report from Study
  Country: CA (occurrence: CA)
  Receive Date: 20130830
  Receipt Date: 20130911
  Transmission Date: 20140515
  Serious: Yes (Other)
  Sender: FDA-Public Use
  Company Number: PHHY2013CA094653

PATIENT
  Age: 82 Year
  Sex: Female

DRUGS (9)
  1. ACLASTA [Suspect]
     Indication: OSTEOPOROSIS
     Dosage: UNK UKN, PER YEAR
     Route: 042
     Dates: start: 2009
  2. ACLASTA [Suspect]
     Dosage: UNK UKN, PER YEAR
     Route: 042
     Dates: start: 20110907
  3. ACLASTA [Suspect]
     Dosage: UNK UKN, PER YEAR
     Route: 042
     Dates: start: 20120906
  4. LIPITOR [Concomitant]
     Dosage: 20 DIE
  5. PANTOLOC//PANTOPRAZOLE SODIUM SESQUIHYDRATE [Concomitant]
     Dosage: 40 DIE
  6. CALCIUM + VITAMIN D                /01483701/ [Concomitant]
  7. SPIRIVA [Concomitant]
     Dosage: 18 DIE
  8. ASPIRIN [Concomitant]
  9. VENTOLIN                           /00942701/ [Concomitant]

REACTIONS (6)
  - Paralysis [Recovered/Resolved]
  - Cardiovascular disorder [Recovered/Resolved]
  - Paresis [Recovered/Resolved]
  - Cerebrovascular stenosis [Recovered/Resolved]
  - Transient ischaemic attack [Recovered/Resolved]
  - Headache [Recovered/Resolved]
